FAERS Safety Report 7784005-9 (Version None)
Quarter: 2011Q3

REPORT INFORMATION
  Report Type: 
  Country: None (occurrence: None)
  Receive Date: 20110928
  Receipt Date: 20110915
  Transmission Date: 20111222
  Serious: Yes (Other)
  Sender: FDA-Public Use
  Company Number: US-JNJFOC-20110906979

PATIENT
  Age: 94 Year
  Sex: Female

DRUGS (5)
  1. TYLENOL-500 [Suspect]
     Route: 048
  2. UNKNOWN MEDICATION [Concomitant]
     Indication: GASTROINTESTINAL DISORDER
  3. TYLENOL-500 [Suspect]
     Indication: PAIN
     Route: 048
     Dates: start: 20110901
  4. ANTIHYPERTENSIVE [Concomitant]
     Indication: HYPERTENSION
  5. CLONAZEPAM [Concomitant]
     Indication: MENTAL DISORDER

REACTIONS (1)
  - BLOOD PRESSURE INCREASED [None]
